FAERS Safety Report 8598461-X (Version None)
Quarter: 2012Q3

REPORT INFORMATION
  Report Type: 
  Country: None (occurrence: None)
  Receive Date: 20120816
  Receipt Date: 20120806
  Transmission Date: 20120928
  Serious: Yes (Other)
  Sender: FDA-Public Use
  Company Number: PHHY2012BR068663

PATIENT
  Age: 71 Year
  Sex: Female

DRUGS (4)
  1. AMLODOPINE BESYLATE AND VALSARTAN [Suspect]
     Indication: HYPERTENSION
     Dosage: 1 DF (160/5 MG), DAILY
  2. ASPIRIN [Concomitant]
     Dosage: 1 TABLET, QD
     Dates: start: 20120101
  3. HYGROTON [Suspect]
     Indication: DIURETIC THERAPY
     Dosage: 1 DF, DAILY
     Dates: end: 20120703
  4. CRESTOR [Concomitant]
     Indication: BLOOD CHOLESTEROL ABNORMAL
     Dosage: 1 TABLET, DAILY
     Dates: start: 20120101

REACTIONS (9)
  - CHEST DISCOMFORT [None]
  - CORONARY ARTERY OCCLUSION [None]
  - LIMB DISCOMFORT [None]
  - ASTHENIA [None]
  - OEDEMA PERIPHERAL [None]
  - POLYURIA [None]
  - COUGH [None]
  - BLOOD PRESSURE DECREASED [None]
  - SOMNOLENCE [None]
